FAERS Safety Report 19716210 (Version 1)
Quarter: 2021Q3

REPORT INFORMATION
  Report Type: Spontaneous
  Country: CA (occurrence: CA)
  Receive Date: 20210819
  Receipt Date: 20210819
  Transmission Date: 20211014
  Serious: Yes (Death)
  Sender: FDA-Public Use
  Company Number: CA-JNJFOC-20210833622

PATIENT
  Age: 59 Year
  Sex: Female
  Weight: 59 kg

DRUGS (5)
  1. DILANTIN [Concomitant]
     Active Substance: PHENYTOIN
     Dosage: UNK
  2. AMITRIPTYLINE [Concomitant]
     Active Substance: AMITRIPTYLINE
     Dosage: UNK
  3. XARELTO [Suspect]
     Active Substance: RIVAROXABAN
     Indication: DEEP VEIN THROMBOSIS
     Dosage: 15 MG, QD
     Route: 048
  4. SALBUTAMOL [Concomitant]
     Active Substance: ALBUTEROL
     Dosage: UNK
  5. PHENOBARBITAL. [Concomitant]
     Active Substance: PHENOBARBITAL
     Dosage: UNK

REACTIONS (2)
  - Pulmonary embolism [Fatal]
  - Cerebrovascular accident [Fatal]
